FAERS Safety Report 12468197 (Version 4)
Quarter: 2016Q4

REPORT INFORMATION
  Report Type: Spontaneous
  Country: US (occurrence: US)
  Receive Date: 20160615
  Receipt Date: 20161212
  Transmission Date: 20170207
  Serious: Yes (Death, Congenital Anomaly, Other)
  Sender: FDA-Public Use
  Company Number: PHEH2016US014565

PATIENT
  Sex: Female

DRUGS (1)
  1. ZOFRAN [Suspect]
     Active Substance: ONDANSETRON HYDROCHLORIDE
     Indication: FOETAL EXPOSURE DURING PREGNANCY
     Dosage: MOTHER DOSE: 1 TABLET (DOSE UNSPECIFIED)
     Route: 064

REACTIONS (31)
  - Pulmonary oedema [Unknown]
  - Hepatic necrosis [Unknown]
  - Pain [Unknown]
  - Cardiac failure [Fatal]
  - Lymphangiectasia [Unknown]
  - Injury [Unknown]
  - Foetal death [Fatal]
  - Right ventricular dilatation [Unknown]
  - Ventricular septal defect [Unknown]
  - Hypoplastic left heart syndrome [Unknown]
  - Thymus enlargement [Unknown]
  - Pulmonary congestion [Unknown]
  - Anxiety [Unknown]
  - Aortic dilatation [Unknown]
  - Anomaly of external ear congenital [Unknown]
  - Pancreatic islets hyperplasia [Unknown]
  - Foetal exposure during pregnancy [Unknown]
  - Emotional distress [Unknown]
  - Adrenal haemorrhage [Unknown]
  - Hepatic haemorrhage [Unknown]
  - Macrophages increased [Unknown]
  - Cardiomegaly [Unknown]
  - Adrenal cortex necrosis [Unknown]
  - Heart disease congenital [Unknown]
  - Atrial septal defect [Unknown]
  - Congenital aortic valve stenosis [Unknown]
  - Cardiac disorder [Unknown]
  - Renal infarct [Unknown]
  - Acute stress disorder [Unknown]
  - Right atrial dilatation [Unknown]
  - Pulmonary artery dilatation [Unknown]

NARRATIVE: CASE EVENT DATE: 2014
